FAERS Safety Report 17420473 (Version 1)
Quarter: 2020Q1

REPORT INFORMATION
  Report Type: Spontaneous
  Country: US (occurrence: US)
  Receive Date: 20200214
  Receipt Date: 20200214
  Transmission Date: 20200409
  Serious: Yes (Death)
  Sender: FDA-Public Use
  Company Number: US-MYLANLABS-2020M1016061

PATIENT
  Age: 17 Year
  Sex: Male

DRUGS (1)
  1. MINOCYCLINE [Suspect]
     Active Substance: MINOCYCLINE HYDROCHLORIDE
     Indication: PRODUCT USED FOR UNKNOWN INDICATION
     Dosage: UNK
     Route: 065

REACTIONS (7)
  - Pseudomonal sepsis [Fatal]
  - Pemphigoid [Fatal]
  - Type 1 diabetes mellitus [Fatal]
  - Drug reaction with eosinophilia and systemic symptoms [Fatal]
  - Autoimmune thyroiditis [Fatal]
  - Multiple organ dysfunction syndrome [Fatal]
  - Staphylococcal sepsis [Fatal]
